FAERS Safety Report 5450124-5 (Version None)
Quarter: 2007Q3

REPORT INFORMATION
  Report Type: 
  Country: None (occurrence: None)
  Receive Date: 20070912
  Receipt Date: 20070910
  Transmission Date: 20080115
  Serious: Yes (Other)
  Sender: FDA-Public Use
  Company Number: A0680132A

PATIENT
  Age: 72 Year
  Sex: Male

DRUGS (7)
  1. AVODART [Suspect]
     Indication: BENIGN PROSTATIC HYPERPLASIA
     Dosage: .5MG PER DAY
     Route: 048
     Dates: start: 20041001
  2. FLOMAX [Suspect]
     Indication: BENIGN PROSTATIC HYPERPLASIA
     Dosage: .4MG PER DAY
     Route: 048
     Dates: start: 20041001
  3. CLOPIDOGREL [Concomitant]
  4. METFORMIN HCL [Concomitant]
  5. SIMVASTATIN [Concomitant]
  6. LISINOPRIL [Concomitant]
  7. HYDROCODONE [Concomitant]

REACTIONS (7)
  - CARTILAGE INJURY [None]
  - DRUG INEFFECTIVE [None]
  - MENISCUS LESION [None]
  - NEPHROLITHIASIS [None]
  - POLLAKIURIA [None]
  - URINARY TRACT DISORDER [None]
  - URINE FLOW DECREASED [None]
